FAERS Safety Report 9606663 (Version 1)
Quarter: 2013Q4

REPORT INFORMATION
  Report Type: Spontaneous
  Country: US (occurrence: US)
  Receive Date: 20131008
  Receipt Date: 20131008
  Transmission Date: 20140711
  Serious: No
  Sender: FDA-Public Use
  Company Number: US-AMGEN-USASP2013059982

PATIENT
  Age: 87 Year
  Sex: Female

DRUGS (5)
  1. PROLIA [Suspect]
     Indication: OSTEOPOROSIS POSTMENOPAUSAL
     Dosage: UNK
     Route: 065
     Dates: start: 201306
  2. NORVASC [Concomitant]
  3. CALCIUM [Concomitant]
  4. VITAMIN D                          /00107901/ [Concomitant]
  5. ZOCOR [Concomitant]

REACTIONS (1)
  - Pain [Unknown]
